FAERS Safety Report 21978247 (Version 1)
Quarter: 2023Q1

REPORT INFORMATION
  Report Type: Report from Study
  Country: CN (occurrence: None)
  Receive Date: 20230210
  Receipt Date: 20230210
  Transmission Date: 20230417
  Serious: Yes (Hospitalization)
  Sender: FDA-Public Use
  Company Number: CN-ROCHE-3278587

PATIENT
  Age: 66 Year
  Sex: Male

DRUGS (11)
  1. RITUXIMAB [Suspect]
     Active Substance: RITUXIMAB
     Indication: Mantle cell lymphoma
     Dosage: 4 HOURS 40 MINS
     Route: 042
     Dates: start: 20220830, end: 20220831
  2. RITUXIMAB [Suspect]
     Active Substance: RITUXIMAB
     Dosage: 6 HOURS 9 MINS
     Route: 042
     Dates: start: 20220928, end: 20220928
  3. ACALABRUTINIB [Suspect]
     Active Substance: ACALABRUTINIB
     Indication: Mantle cell lymphoma
     Dosage: 1 DAY
     Route: 048
     Dates: start: 20220830, end: 20220830
  4. ACALABRUTINIB [Suspect]
     Active Substance: ACALABRUTINIB
     Dosage: 3 WEEKS 1 DAY
     Route: 048
     Dates: start: 20220831, end: 20220921
  5. ACALABRUTINIB [Suspect]
     Active Substance: ACALABRUTINIB
     Dosage: 1 DAY
     Route: 048
     Dates: start: 20220922, end: 20220922
  6. BENDAMUSTINE HYDROCHLORIDE [Suspect]
     Active Substance: BENDAMUSTINE HYDROCHLORIDE
     Indication: Mantle cell lymphoma
     Dosage: 3 HOURS 40 MINS
     Route: 042
     Dates: start: 20220830, end: 20220830
  7. BENDAMUSTINE HYDROCHLORIDE [Suspect]
     Active Substance: BENDAMUSTINE HYDROCHLORIDE
     Dosage: 1 HOUR 47 MINS
     Route: 042
     Dates: start: 20220831, end: 20220831
  8. BENDAMUSTINE HYDROCHLORIDE [Suspect]
     Active Substance: BENDAMUSTINE HYDROCHLORIDE
     Dosage: 2 HOURS 32 MINS
     Route: 042
     Dates: start: 20220928, end: 20220928
  9. BENDAMUSTINE HYDROCHLORIDE [Suspect]
     Active Substance: BENDAMUSTINE HYDROCHLORIDE
     Dosage: 2 HOURS 38 MINS
     Route: 042
     Dates: start: 20220929, end: 20220929
  10. AMLODIPINE BESYLATE [Concomitant]
     Active Substance: AMLODIPINE BESYLATE
     Indication: Hypertension
     Route: 048
     Dates: start: 2002
  11. ENTECAVIR [Concomitant]
     Active Substance: ENTECAVIR
     Route: 048
     Dates: start: 20220831

REACTIONS (1)
  - Pleural effusion [Not Recovered/Not Resolved]

NARRATIVE: CASE EVENT DATE: 20221230
